FAERS Safety Report 5169521-0 (Version None)
Quarter: 2006Q4

REPORT INFORMATION
  Report Type: 
  Country: None (occurrence: None)
  Receive Date: 20061204
  Receipt Date: 20061120
  Transmission Date: 20070319
  Serious: Yes (Hospitalization)
  Sender: FDA-Public Use
  Company Number: 2006BI012006

PATIENT
  Age: 64 Year
  Sex: Male

DRUGS (10)
  1. AVONEX [Suspect]
     Indication: MULTIPLE SCLEROSIS
     Dosage: 30 UG; QW; IM
     Route: 030
     Dates: start: 20030101
  2. PREDNISONE TAB [Concomitant]
  3. DURAGESIC-100 [Concomitant]
  4. WELLBUTRIN [Concomitant]
  5. FOSAMAX [Concomitant]
  6. NEURONTIN [Concomitant]
  7. LIPITOR [Concomitant]
  8. GLIPIZIDE [Concomitant]
  9. PROVIGIL [Concomitant]
  10. ZANAFLEX [Concomitant]

REACTIONS (3)
  - CHEST PAIN [None]
  - PERIPHERAL VASCULAR DISORDER [None]
  - SKIN ULCER [None]
